FAERS Safety Report 7875793 (Version 4)
Quarter: 2013Q3

REPORT INFORMATION
  Report Type: Spontaneous
  Country: US (occurrence: US)
  Receive Date: 20110329
  Receipt Date: 20130812
  Transmission Date: 20140515
  Serious: Yes (Hospitalization)
  Sender: FDA-Public Use
  Company Number: US-B.I. PHARMACEUTICALS,INC./RIDGEFIELD-2011-BP-08947BP

PATIENT
  Age: 46 Year
  Sex: Male

DRUGS (5)
  1. PRADAXA [Suspect]
     Indication: ATRIAL FIBRILLATION
     Dosage: 300 MG
     Dates: start: 20110203
  2. ASPIRIN [Suspect]
     Dosage: 81 MG
  3. METOPROLOL [Concomitant]
     Dosage: 25 MG
  4. SIMVASTATIN [Concomitant]
     Dosage: 40 MG
  5. MULTAQ [Concomitant]
     Dosage: 800 MG

REACTIONS (5)
  - Rectal haemorrhage [Recovered/Resolved]
  - Gastrointestinal haemorrhage [Recovered/Resolved]
  - Diverticulum [Recovered/Resolved]
  - Diverticulum intestinal haemorrhagic [Recovered/Resolved]
  - Melaena [Recovered/Resolved]
